FAERS Safety Report 6700338-9 (Version None)
Quarter: 2010Q2

REPORT INFORMATION
  Report Type: 
  Country: None (occurrence: None)
  Receive Date: 20100428
  Receipt Date: 20100419
  Transmission Date: 20101027
  Serious: Yes (Death)
  Sender: FDA-Public Use
  Company Number: JP-ROCHE-690960

PATIENT
  Sex: Female
  Weight: 47 kg

DRUGS (6)
  1. AVASTIN [Suspect]
     Route: 041
     Dates: start: 20100129, end: 20100212
  2. GLYCERIN [Suspect]
     Indication: DRUG USE FOR UNKNOWN INDICATION
     Route: 041
     Dates: end: 20100305
  3. OMEPRAL [Concomitant]
     Route: 041
  4. PREDONINE [Concomitant]
     Route: 041
     Dates: end: 20100305
  5. AMLODIN [Concomitant]
     Route: 048
     Dates: end: 20100218
  6. CANDESARTAN CILEXETIL [Concomitant]
     Route: 048
     Dates: end: 20100218

REACTIONS (2)
  - BASILAR ARTERY OCCLUSION [None]
  - HEADACHE [None]
